FAERS Safety Report 7985976-8 (Version None)
Quarter: 2011Q4

REPORT INFORMATION
  Report Type: 
  Country: None (occurrence: None)
  Receive Date: 20111216
  Receipt Date: 20111213
  Transmission Date: 20120403
  Serious: Yes (Disabling)
  Sender: FDA-Public Use
  Company Number: US-MERCK-1112USA01783

PATIENT
  Sex: Female

DRUGS (7)
  1. ACTONEL [Suspect]
     Route: 065
     Dates: start: 19980301, end: 20100301
  2. RISEDRONATE SODIUM [Suspect]
     Route: 065
     Dates: start: 19980301, end: 20100301
  3. FOSAMAX PLUS D [Suspect]
     Route: 048
     Dates: start: 19980301, end: 20100301
  4. FOSAMAX [Suspect]
     Route: 048
     Dates: start: 19980301, end: 20100301
  5. BONIVA [Suspect]
     Route: 065
     Dates: start: 19980301, end: 20100301
  6. IBANDRONATE SODIUM [Suspect]
     Route: 065
     Dates: start: 19980301, end: 20100301
  7. FOSAMAX [Suspect]
     Route: 048
     Dates: start: 19980301, end: 20100301

REACTIONS (2)
  - FEMUR FRACTURE [None]
  - STRESS FRACTURE [None]
